FAERS Safety Report 25352645 (Version 1)
Quarter: 2025Q2

REPORT INFORMATION
  Report Type: Spontaneous
  Country: US (occurrence: None)
  Receive Date: 20250523
  Receipt Date: 20250523
  Transmission Date: 20250717
  Serious: Yes (Life-Threatening, Disabling)
  Sender: FDA-CTU
  Company Number: None

PATIENT
  Age: 29 Year
  Sex: Female
  Weight: 58 kg

DRUGS (1)
  1. VISIPAQUE [Suspect]
     Active Substance: IODIXANOL

REACTIONS (4)
  - Insomnia [None]
  - Akathisia [None]
  - Seizure [None]
  - Nervous system disorder [None]

NARRATIVE: CASE EVENT DATE: 20250404
